FAERS Safety Report 8549015-2 (Version None)
Quarter: 2012Q3

REPORT INFORMATION
  Report Type: 
  Country: None (occurrence: None)
  Receive Date: 20120730
  Receipt Date: 20120719
  Transmission Date: 20120928
  Serious: Yes (Hospitalization)
  Sender: FDA-Public Use
  Company Number: JP-VERTEX PHARMACEUTICALS INC.-AE-2012-010816

PATIENT
  Age: 68 Year
  Sex: Female

DRUGS (4)
  1. PEGINTERFERON ALFA-2B [Concomitant]
     Route: 058
     Dates: start: 20120607
  2. RIBAVIRIN [Concomitant]
     Route: 048
     Dates: start: 20120607
  3. TELAVIC (TELAPREVIR) [Suspect]
     Route: 048
     Dates: start: 20120620
  4. TELAVIC (TELAPREVIR) [Suspect]
     Route: 048
     Dates: start: 20120607

REACTIONS (1)
  - ASCITES [None]
